FAERS Safety Report 24753189 (Version 1)
Quarter: 2024Q4

REPORT INFORMATION
  Report Type: Report from Study
  Country: US (occurrence: US)
  Receive Date: 20241219
  Receipt Date: 20241219
  Transmission Date: 20250115
  Serious: Yes (Other)
  Sender: ABBVIE
  Company Number: US-ABBVIE-6007637

PATIENT
  Age: 66 Year
  Sex: Female

DRUGS (3)
  1. HUMIRA [Suspect]
     Active Substance: ADALIMUMAB
     Indication: Psoriatic arthropathy
     Dosage: LAST ADMIN DATE-2024
     Route: 058
     Dates: start: 20240606
  2. VENTOLIN [Concomitant]
     Active Substance: ALBUTEROL SULFATE
     Indication: Asthma
  3. ELIQUIS [Concomitant]
     Active Substance: APIXABAN
     Indication: May-Thurner syndrome

REACTIONS (5)
  - Hernia [Unknown]
  - Urinary tract infection [Recovering/Resolving]
  - Sinusitis [Unknown]
  - Pyrexia [Recovering/Resolving]
  - Tooth disorder [Unknown]

NARRATIVE: CASE EVENT DATE: 20240101
